FAERS Safety Report 9210217 (Version 1)
Quarter: 2013Q2

REPORT INFORMATION
  Report Type: Spontaneous
  Country: IT (occurrence: IT)
  Receive Date: 20130404
  Receipt Date: 20130404
  Transmission Date: 20140414
  Serious: Yes (Other)
  Sender: FDA-Public Use
  Company Number: IT-TEVA-395118ISR

PATIENT
  Age: 75 Year
  Sex: Male

DRUGS (5)
  1. CARBOPLATINO TEVA [Suspect]
     Indication: LUNG ADENOCARCINOMA
     Dosage: 441.5 MILLIGRAM DAILY;
     Route: 042
     Dates: start: 20121022, end: 20121203
  2. PACLITAXEL TEVA [Suspect]
     Indication: LUNG ADENOCARCINOMA
     Dosage: 295.8 MILLIGRAM DAILY;
     Route: 042
     Dates: start: 20121022, end: 20121203
  3. ONDANSETRONE HIKMA [Concomitant]
     Indication: LUNG ADENOCARCINOMA
     Dosage: 8 MG
     Route: 042
     Dates: start: 20121022, end: 20121203
  4. SOLDESAM [Concomitant]
     Indication: LUNG ADENOCARCINOMA
     Dosage: 8MG/2ML
     Route: 042
     Dates: start: 20121022, end: 20121203
  5. RANIDIL [Concomitant]
     Indication: LUNG ADENOCARCINOMA
     Dosage: 50 MG / 5 ML
     Route: 042
     Dates: start: 20121022, end: 20121203

REACTIONS (8)
  - Conjunctivitis [Recovering/Resolving]
  - Constipation [Recovering/Resolving]
  - Fatigue [Recovering/Resolving]
  - Fatigue [Recovering/Resolving]
  - Dry skin [Recovering/Resolving]
  - Skin irritation [Recovering/Resolving]
  - Paraesthesia [Recovering/Resolving]
  - Pyrexia [Recovering/Resolving]
